FAERS Safety Report 15937363 (Version 1)
Quarter: 2019Q1

REPORT INFORMATION
  Report Type: Spontaneous
  Country: US (occurrence: US)
  Receive Date: 20190208
  Receipt Date: 20190208
  Transmission Date: 20190417
  Serious: Yes (Other)
  Sender: FDA-Public Use
  Company Number: None

PATIENT
  Age: 71 Year
  Sex: Female
  Weight: 99 kg

DRUGS (8)
  1. OMEPRAZOLE. [Concomitant]
     Active Substance: OMEPRAZOLE
  2. COQ10 [Concomitant]
     Active Substance: UBIDECARENONE
  3. TUMERIC [Concomitant]
     Active Substance: HERBALS\TURMERIC
  4. OMEGA FISH OIL [Concomitant]
     Active Substance: FISH OIL\OMEGA-3 FATTY ACIDS
  5. LOSARTIN/HCTZ [Concomitant]
  6. AREDS 2 [Concomitant]
     Active Substance: MINERALS\VITAMINS
  7. MULTIPLE VITAMIN [Concomitant]
     Active Substance: VITAMINS
  8. MYRBETRIQ [Suspect]
     Active Substance: MIRABEGRON
     Indication: HYPERTONIC BLADDER
     Route: 048
     Dates: start: 20190119, end: 20190203

REACTIONS (2)
  - Blood pressure increased [None]
  - Urinary tract infection [None]

NARRATIVE: CASE EVENT DATE: 20190204
